FAERS Safety Report 4388295-4 (Version None)
Quarter: 2004Q2

REPORT INFORMATION
  Report Type: 
  Country: None (occurrence: None)
  Receive Date: 20040625
  Receipt Date: 20040611
  Transmission Date: 20050107
  Serious: No
  Sender: FDA-Public Use
  Company Number: E129467

PATIENT
  Age: 37 Year
  Sex: Male

DRUGS (7)
  1. OXALIPLATIN [Suspect]
     Indication: COLORECTAL CANCER
     Dosage: 75 MG/M2 Q2W INTRAVENOUS NOS
     Route: 042
     Dates: start: 20011123, end: 20011123
  2. FLUOROURACIL [Suspect]
     Dosage: 200 MG/M2 CONT INTRAVENOUS NOS
     Route: 042
     Dates: start: 20010622, end: 20041123
  3. WARFARIN SODIUM [Concomitant]
  4. OMEPRAZOLE [Concomitant]
  5. ONDANSETRON [Concomitant]
  6. DEXAMETHASONE [Concomitant]
  7. PYRIDOXINE [Concomitant]

REACTIONS (8)
  - BLOOD ALBUMIN DECREASED [None]
  - DIARRHOEA [None]
  - GAMMA-GLUTAMYLTRANSFERASE INCREASED [None]
  - LHERMITTE'S SIGN [None]
  - MUCOSAL INFLAMMATION [None]
  - MYELOPATHY [None]
  - NEUROPATHY [None]
  - PLATELET COUNT DECREASED [None]
